FAERS Safety Report 7438263-0 (Version None)
Quarter: 2011Q2

REPORT INFORMATION
  Report Type: 
  Country: None (occurrence: None)
  Receive Date: 20110426
  Receipt Date: 20101215
  Transmission Date: 20111010
  Serious: No
  Sender: FDA-Public Use
  Company Number: US-BAYER-2010-007431

PATIENT
  Sex: Female

DRUGS (3)
  1. YASMIN [Suspect]
     Indication: MOOD SWINGS
  2. YASMIN [Suspect]
     Indication: MENORRHAGIA
  3. YASMIN [Suspect]
     Indication: ACNE
     Dosage: UNK
     Dates: start: 20101208

REACTIONS (1)
  - ACNE [None]
